FAERS Safety Report 5606071-9 (Version None)
Quarter: 2008Q1

REPORT INFORMATION
  Report Type: 
  Country: None (occurrence: None)
  Receive Date: 20080123
  Receipt Date: 20080123
  Transmission Date: 20080703
  Serious: Yes (Other)
  Sender: FDA-Public Use
  Company Number: None

PATIENT
  Age: 65 Year
  Sex: Male
  Weight: 88.8 kg

DRUGS (1)
  1. TERAZOSIN HCL [Suspect]

REACTIONS (1)
  - SYNCOPE [None]
